FAERS Safety Report 4565234-4 (Version None)
Quarter: 2005Q1

REPORT INFORMATION
  Report Type: 
  Country: None (occurrence: None)
  Receive Date: 20050124
  Receipt Date: 20050106
  Transmission Date: 20050727
  Serious: Yes (Other)
  Sender: FDA-Public Use
  Company Number: 200510017BBE

PATIENT
  Sex: Female

DRUGS (1)
  1. PLASMANATE [Suspect]

REACTIONS (6)
  - BODY TEMPERATURE INCREASED [None]
  - GRANULOCYTE COUNT DECREASED [None]
  - PARVOVIRUS INFECTION [None]
  - POST PROCEDURAL COMPLICATION [None]
  - RASH [None]
  - RETICULOCYTE COUNT DECREASED [None]
